FAERS Safety Report 4759382-3 (Version None)
Quarter: 2005Q3

REPORT INFORMATION
  Report Type: 
  Country: None (occurrence: None)
  Receive Date: 20050831
  Receipt Date: 20050817
  Transmission Date: 20060218
  Serious: Yes (Other)
  Sender: FDA-Public Use
  Company Number: 12054

PATIENT

DRUGS (1)
  1. MORPHINE [Suspect]
     Indication: PROCEDURAL PAIN

REACTIONS (8)
  - CEREBRAL VENTRICLE DILATATION [None]
  - DEVELOPMENTAL DELAY [None]
  - DRUG EXPOSURE DURING PREGNANCY [None]
  - FOETAL CEREBROVASCULAR DISORDER [None]
  - FOETAL DISORDER [None]
  - FOETAL HEART RATE DECELERATION [None]
  - HYPOXIA [None]
  - PREMATURE BABY [None]
